FAERS Safety Report 4638456-1 (Version None)
Quarter: 2005Q2

REPORT INFORMATION
  Report Type: 
  Country: None (occurrence: None)
  Receive Date: 20050418
  Receipt Date: 20050404
  Transmission Date: 20051028
  Serious: Yes (Hospitalization, Other)
  Sender: FDA-Public Use
  Company Number: 2005036911

PATIENT
  Age: 19 Year
  Sex: Female
  Weight: 52 kg

DRUGS (18)
  1. LINEZOLID SOLUTION, STERILE (LINEZOLID) [Suspect]
     Indication: PNEUMONIA
     Dosage: 1200 MG (600 MG, BID), ORAL
     Route: 048
     Dates: start: 20050131, end: 20050206
  2. LINEZOLID SOLUTION, STERILE (LINEZOLID) [Suspect]
     Indication: SEPSIS
     Dosage: 1200 MG (600 MG, BID), ORAL
     Route: 048
     Dates: start: 20050131, end: 20050206
  3. MEROPENEM (MEROPENEM) [Concomitant]
  4. VANCOMYCIN [Concomitant]
  5. OMEPRAZOLE [Concomitant]
  6. PIRACETAM (PIRACETAM) [Concomitant]
  7. BROMHEXINE HYDROCHLORIDE (BROMHEXINE HYDROCHLORIDE) [Concomitant]
  8. DESMOPRESSIN ACETATE (DESMOPRESSIN ACETATE) [Concomitant]
  9. TETRAZEPAM (TETRAZEPAM) [Concomitant]
  10. METOCLOPRAMIDE HYDROCHLORIDE [Concomitant]
  11. GENERAL NUTRIENTS (GENERAL NUTRIENTS) [Concomitant]
  12. POTASSIUM CHLORIDE [Concomitant]
  13. PRIMAXIN [Concomitant]
  14. INSULIN (INSULIN0 [Concomitant]
  15. THIAMINE HCL [Concomitant]
  16. PYRIDOXINE HCL [Concomitant]
  17. ASCORBIC ACID [Concomitant]
  18. NIFUROXAZIDE (NIFUROXAZIDE) [Concomitant]

REACTIONS (3)
  - ANAEMIA [None]
  - HEPATOSPLENOMEGALY [None]
  - THROMBOCYTOPENIA [None]
